FAERS Safety Report 5388023-X (Version None)
Quarter: 2007Q3

REPORT INFORMATION
  Report Type: 
  Country: None (occurrence: None)
  Receive Date: 20070716
  Receipt Date: 20070711
  Transmission Date: 20080115
  Serious: Yes (Life-Threatening, Hospitalization, Disabling, Other)
  Sender: FDA-Public Use
  Company Number: US-MERCK-0704USA03630

PATIENT
  Age: 52 Year
  Sex: Female
  Weight: 69 kg

DRUGS (17)
  1. JANUVIA [Suspect]
     Indication: TYPE 2 DIABETES MELLITUS
     Route: 048
     Dates: start: 20070305, end: 20070327
  2. LANOXIN [Concomitant]
     Route: 065
  3. HYDROCHLOROTHIAZIDE AND TRIAMTERENE [Concomitant]
     Route: 065
  4. EVISTA [Concomitant]
     Route: 065
  5. ZOMETA [Concomitant]
     Route: 041
  6. PAXIL [Concomitant]
     Route: 065
  7. LOVASTATIN [Concomitant]
     Route: 058
  8. AROMASIN [Concomitant]
     Route: 065
  9. PAROXETINE HYDROCHLORIDE [Concomitant]
     Route: 065
  10. PRINIVIL [Concomitant]
     Route: 048
  11. ALPRAZOLAM [Concomitant]
     Route: 065
  12. LOVENOX [Concomitant]
     Route: 065
  13. K-DUR 10 [Concomitant]
     Route: 065
  14. CALCORA [Concomitant]
     Route: 065
  15. XANAX [Concomitant]
     Route: 065
  16. DEMEROL [Concomitant]
     Route: 065
  17. PHENERGAN [Concomitant]
     Route: 065

REACTIONS (14)
  - ANAEMIA [None]
  - ARTHROPATHY [None]
  - CARDIAC FAILURE [None]
  - DECREASED APPETITE [None]
  - DELIRIUM [None]
  - GENERALISED ANXIETY DISORDER [None]
  - INSOMNIA [None]
  - MAJOR DEPRESSION [None]
  - METABOLIC ENCEPHALOPATHY [None]
  - PALPITATIONS [None]
  - PULMONARY EMBOLISM [None]
  - RENAL FAILURE ACUTE [None]
  - RENAL FAILURE CHRONIC [None]
  - SINUS BRADYCARDIA [None]
